FAERS Safety Report 9468761 (Version 3)
Quarter: 2014Q1

REPORT INFORMATION
  Report Type: Spontaneous
  Country: LB (occurrence: LB)
  Receive Date: 20130821
  Receipt Date: 20140123
  Transmission Date: 20141002
  Serious: Yes (Other)
  Sender: FDA-Public Use
  Company Number: LB-JNJFOC-20130807540

PATIENT
  Age: 78 Year
  Sex: Female

DRUGS (8)
  1. RISPERDAL [Suspect]
     Indication: NERVOUSNESS
     Route: 048
  2. REMINYL [Suspect]
     Indication: DEMENTIA
     Route: 048
  3. MICARDIS PLUS [Concomitant]
     Indication: PRODUCT USED FOR UNKNOWN INDICATION
     Route: 048
  4. ROSUVASTATIN [Concomitant]
     Indication: PRODUCT USED FOR UNKNOWN INDICATION
     Route: 048
  5. AMLOR [Concomitant]
     Indication: PRODUCT USED FOR UNKNOWN INDICATION
     Route: 065
  6. EURO D [Concomitant]
     Indication: PRODUCT USED FOR UNKNOWN INDICATION
     Route: 048
  7. OROCAL D3 [Concomitant]
     Indication: PRODUCT USED FOR UNKNOWN INDICATION
     Route: 048
  8. PHARMATON COMPLEX [Concomitant]
     Indication: PRODUCT USED FOR UNKNOWN INDICATION
     Route: 048

REACTIONS (5)
  - Blood glucose increased [Recovered/Resolved]
  - Abnormal behaviour [Unknown]
  - Off label use [Unknown]
  - Treatment noncompliance [Unknown]
  - Nervousness [Unknown]
